FAERS Safety Report 8750146 (Version 2)
Quarter: 2012Q4

REPORT INFORMATION
  Report Type: Spontaneous
  Country: US (occurrence: None)
  Receive Date: 20120810
  Receipt Date: 20120823
  Transmission Date: 20130627
  Serious: Yes (Death, Other)
  Sender: FDA-Public Use
  Company Number: TPA2012A03435

PATIENT
  Age: 64 Year
  Sex: Male

DRUGS (7)
  1. ACTOS [Suspect]
     Indication: TYPE 2 DIABETES MELLITUS
     Dosage: 15 MG, 1 IN 1 D ; 30 MG, 1 IN 1 D ; 45 MG, 1 IN 1 D
     Dates: start: 2001, end: 2005
  2. ACTOS [Suspect]
     Indication: TYPE 2 DIABETES MELLITUS
     Dosage: 15 MG, 1 IN 1 D ; 30 MG, 1 IN 1 D ; 45 MG, 1 IN 1 D
     Dates: start: 20050512, end: 20050610
  3. ACTOS [Suspect]
     Indication: TYPE 2 DIABETES MELLITUS
     Dosage: 15 MG, 1 IN 1 D ; 30 MG, 1 IN 1 D ; 45 MG, 1 IN 1 D
     Dates: start: 20050713, end: 200512
  4. AVANDIA [Concomitant]
  5. GLUCOPHAGE [Concomitant]
  6. LANTUS [Concomitant]
  7. LEVEMIR [Concomitant]

REACTIONS (1)
  - Bladder cancer [None]
